FAERS Safety Report 9451130 (Version 1)
Quarter: 2013Q3

REPORT INFORMATION
  Report Type: Spontaneous
  Country: IT (occurrence: IT)
  Receive Date: 20130809
  Receipt Date: 20130809
  Transmission Date: 20140515
  Serious: Yes (Hospitalization)
  Sender: FDA-Public Use
  Company Number: IT-TEVA-422828ISR

PATIENT
  Age: 85 Year
  Sex: Male

DRUGS (4)
  1. AMIODARONE [Suspect]
     Dosage: 200 MILLIGRAM DAILY;
     Route: 048
     Dates: start: 20130501, end: 20130620
  2. FUROSEMIDE [Suspect]
     Dosage: 50 MILLIGRAM DAILY;
     Route: 048
  3. BISOPROLOLO FUMARATO [Concomitant]
  4. WARFARIN SODICO [Concomitant]

REACTIONS (2)
  - Orthostatic hypotension [Recovering/Resolving]
  - Bradycardia [Recovering/Resolving]
